FAERS Safety Report 7024210-2 (Version None)
Quarter: 2010Q4

REPORT INFORMATION
  Report Type: 
  Country: None (occurrence: None)
  Receive Date: 20101001
  Receipt Date: 20100917
  Transmission Date: 20110411
  Serious: Yes (Hospitalization)
  Sender: FDA-Public Use
  Company Number: US-ROCHE-729305

PATIENT
  Sex: Male
  Weight: 56.7 kg

DRUGS (5)
  1. VALIUM [Suspect]
     Dosage: MANY YEARS
     Route: 048
  2. KEPPRA [Concomitant]
  3. LAMICTAL [Concomitant]
  4. CHLORAL HYDRATE [Concomitant]
  5. CLORAZEPATE DIPOTASSIUM [Concomitant]

REACTIONS (1)
  - PNEUMONIA ASPIRATION [None]
